FAERS Safety Report 22037814 (Version 1)
Quarter: 2023Q1

REPORT INFORMATION
  Report Type: Spontaneous
  Country: JP (occurrence: JP)
  Receive Date: 20230227
  Receipt Date: 20230227
  Transmission Date: 20230417
  Serious: Yes (Other)
  Sender: FDA-Public Use
  Company Number: JP-MSD-2302JPN002803J

PATIENT
  Age: 86 Year
  Sex: Female

DRUGS (1)
  1. STROMECTOL [Suspect]
     Active Substance: IVERMECTIN
     Indication: Acarodermatitis
     Dosage: UNK
     Route: 048

REACTIONS (4)
  - Hypothermia [Unknown]
  - Loss of consciousness [Unknown]
  - Pyrexia [Unknown]
  - Drug eruption [Unknown]
